FAERS Safety Report 21625687 (Version 1)
Quarter: 2022Q4

REPORT INFORMATION
  Report Type: Other
  Country: US (occurrence: None)
  Receive Date: 20221122
  Receipt Date: 20221122
  Transmission Date: 20230113
  Serious: Yes (Hospitalization)
  Sender: FDA-Public Use
  Company Number: US-ROCHE-3177916

PATIENT
  Age: 63 Year
  Sex: Female

DRUGS (10)
  1. TRASTUZUMAB [Suspect]
     Active Substance: TRASTUZUMAB
     Indication: Invasive ductal breast carcinoma
     Route: 065
  2. ANASTROZOLE [Concomitant]
     Active Substance: ANASTROZOLE
     Indication: Invasive ductal breast carcinoma
  3. ADENOSINE [Concomitant]
     Active Substance: ADENOSINE
     Indication: Tachycardia
  4. DILTIAZEM [Concomitant]
     Active Substance: DILTIAZEM
     Indication: Tachycardia
  5. AMIODARONE [Concomitant]
     Active Substance: AMIODARONE
     Indication: Atrial fibrillation
  6. DABIGATRAN [Concomitant]
     Active Substance: DABIGATRAN
  7. DULOXETINE [Concomitant]
     Active Substance: DULOXETINE
  8. BUPROPION [Concomitant]
     Active Substance: BUPROPION
     Dosage: EXTENDED RELEASE
  9. TRAZODONE [Concomitant]
     Active Substance: TRAZODONE HYDROCHLORIDE
     Dosage: AT NIGHT
  10. DRONEDARONE [Concomitant]
     Active Substance: DRONEDARONE

REACTIONS (1)
  - Left ventricular dysfunction [Unknown]
